FAERS Safety Report 9959362 (Version 2)
Quarter: 2014Q1

REPORT INFORMATION
  Report Type: Report from Study
  Country: US (occurrence: US)
  Receive Date: 20140305
  Receipt Date: 20140305
  Transmission Date: 20141002
  Serious: Yes (Other)
  Sender: FDA-Public Use
  Company Number: US-ABBVIE-13P-163-1055906-00

PATIENT
  Sex: Female

DRUGS (15)
  1. HUMIRA [Suspect]
     Indication: UVEITIS
     Dates: start: 201207
  2. HUMIRA [Suspect]
     Indication: UVEITIS
  3. LEVOTHYROXINE [Concomitant]
     Indication: THYROID DISORDER
  4. METFORMIN [Concomitant]
     Indication: INSULIN RESISTANCE
  5. PREDNISONE [Concomitant]
     Indication: PRODUCT USED FOR UNKNOWN INDICATION
     Dosage: ONE DAY
  6. PREDNISONE [Concomitant]
     Dosage: THE NEXT DAY
  7. VITAMIN D [Concomitant]
     Indication: PRODUCT USED FOR UNKNOWN INDICATION
  8. FUROSEMIDE [Concomitant]
     Indication: FLUID RETENTION
  9. POTASSIUM CHLORIDE [Concomitant]
     Indication: PRODUCT USED FOR UNKNOWN INDICATION
  10. VITAMIN B-12 [Concomitant]
     Indication: ANAEMIA
  11. LOSARTAN [Concomitant]
     Indication: BLOOD PRESSURE
  12. AMLODIPINE [Concomitant]
     Indication: BLOOD PRESSURE
  13. ALPHAGAN [Concomitant]
     Indication: PRODUCT USED FOR UNKNOWN INDICATION
     Route: 047
  14. UNKNOWN STERIOD OPTHALMALIC SOLUTION [Concomitant]
     Indication: PRODUCT USED FOR UNKNOWN INDICATION
     Route: 047
  15. PREDNISOLONE OPTHALMALIC SOLUTION [Concomitant]

REACTIONS (6)
  - Cataract [Unknown]
  - Malaise [Unknown]
  - Influenza like illness [Unknown]
  - Cough [Unknown]
  - Nausea [Unknown]
  - Incorrect product storage [Unknown]
